FAERS Safety Report 9888042 (Version 1)
Quarter: 2014Q1

REPORT INFORMATION
  Report Type: Spontaneous
  Country: US (occurrence: US)
  Receive Date: 20140211
  Receipt Date: 20140211
  Transmission Date: 20141002
  Serious: Yes (Hospitalization)
  Sender: FDA-Public Use
  Company Number: US-AMGEN-USASP2014009144

PATIENT
  Age: 69 Year
  Sex: Female

DRUGS (1)
  1. ENBREL [Suspect]
     Indication: OSTEOARTHRITIS
     Dosage: UNKNOWN DOSAGE, WEEKLY
     Route: 065
     Dates: start: 20131211, end: 20140115

REACTIONS (18)
  - Hepatic cirrhosis [Recovered/Resolved]
  - Diverticulum [Recovered/Resolved]
  - Pleural effusion [Recovered/Resolved]
  - Blood potassium decreased [Recovered/Resolved]
  - Blood magnesium decreased [Recovered/Resolved]
  - Nausea [Recovered/Resolved]
  - Aphagia [Recovered/Resolved]
  - Decreased appetite [Recovered/Resolved]
  - Vomiting [Recovered/Resolved]
  - Diarrhoea [Recovered/Resolved]
  - Asthenia [Recovered/Resolved]
  - Weight decreased [Recovered/Resolved]
  - Depressed mood [Recovered/Resolved]
  - Depression [Recovered/Resolved]
  - Fatigue [Recovered/Resolved]
  - Abasia [Recovered/Resolved]
  - Disturbance in attention [Recovered/Resolved]
  - Communication disorder [Recovered/Resolved]
